FAERS Safety Report 7398477-5 (Version None)
Quarter: 2011Q2

REPORT INFORMATION
  Report Type: 
  Country: None (occurrence: None)
  Receive Date: 20110407
  Receipt Date: 20110331
  Transmission Date: 20111010
  Serious: Yes (Other)
  Sender: FDA-Public Use
  Company Number: US-BIOGENIDEC-2011BI009905

PATIENT
  Age: 56 Year
  Sex: Female

DRUGS (4)
  1. AVONEX [Suspect]
     Route: 030
     Dates: start: 19980529, end: 20061129
  2. AVONEX [Suspect]
     Indication: MULTIPLE SCLEROSIS
     Route: 030
     Dates: start: 20100609
  3. AVONEX [Suspect]
     Route: 030
     Dates: start: 19970601
  4. AVONEX [Suspect]
     Route: 030
     Dates: start: 20070308, end: 20070829

REACTIONS (7)
  - URTICARIA [None]
  - CROHN'S DISEASE [None]
  - ABDOMINAL DISCOMFORT [None]
  - AMNESIA [None]
  - INFLUENZA LIKE ILLNESS [None]
  - STRESS [None]
  - MULTIPLE SCLEROSIS RELAPSE [None]
